FAERS Safety Report 6407472-1 (Version None)
Quarter: 2009Q4

REPORT INFORMATION
  Report Type: 
  Country: None (occurrence: None)
  Receive Date: 20091015
  Receipt Date: 20091006
  Transmission Date: 20100525
  Serious: Yes (Hospitalization)
  Sender: FDA-Public Use
  Company Number: GXKR2009GB11024

PATIENT
  Sex: Male

DRUGS (8)
  1. ATENOLOL [Suspect]
     Indication: HYPERTENSION
     Dosage: 50 MG, ORAL
     Route: 048
  2. RAMIPRIL [Suspect]
     Indication: HYPERTENSION
     Dosage: 5 MG, ORAL
     Route: 048
  3. SEROQUEL [Suspect]
     Indication: PSYCHOTIC DISORDER
     Dosage: 300 MG, BID, ORAL; 600 MG, MG/DAY, ORAL; 500 MG/DAY, ORAL; 400 MG/DAY, ORAL
     Route: 048
     Dates: start: 20090101
  4. SEROQUEL [Suspect]
     Indication: PSYCHOTIC DISORDER
     Dosage: 300 MG, BID, ORAL; 600 MG, MG/DAY, ORAL; 500 MG/DAY, ORAL; 400 MG/DAY, ORAL
     Route: 048
     Dates: start: 20090101
  5. SEROQUEL [Suspect]
     Indication: PSYCHOTIC DISORDER
     Dosage: 300 MG, BID, ORAL; 600 MG, MG/DAY, ORAL; 500 MG/DAY, ORAL; 400 MG/DAY, ORAL
     Route: 048
     Dates: start: 20090101
  6. ASPIRIN [Concomitant]
  7. FLUOXETINE [Concomitant]
  8. PARACETAMOL      (PARACETAMOL) [Concomitant]

REACTIONS (5)
  - BLOOD PRESSURE INCREASED [None]
  - CIRCULATORY COLLAPSE [None]
  - INCORRECT DOSE ADMINISTERED [None]
  - SELF-MEDICATION [None]
  - SYNCOPE [None]
